FAERS Safety Report 8541171-5 (Version None)
Quarter: 2012Q3

REPORT INFORMATION
  Report Type: 
  Country: None (occurrence: None)
  Receive Date: 20120726
  Receipt Date: 20120717
  Transmission Date: 20120928
  Serious: Yes (Hospitalization)
  Sender: FDA-Public Use
  Company Number: US-ACTELION-A-US2012-68859

PATIENT

DRUGS (4)
  1. ASPIRIN [Concomitant]
  2. TRACLEER [Suspect]
     Indication: PULMONARY ARTERIAL HYPERTENSION
     Dosage: UNK
     Route: 048
  3. NITROGLYCERIN [Suspect]
  4. COUMADIN [Concomitant]

REACTIONS (4)
  - DRUG HYPERSENSITIVITY [None]
  - CARDIAC DISORDER [None]
  - GAIT DISTURBANCE [None]
  - VISUAL IMPAIRMENT [None]
